FAERS Safety Report 5526443-0 (Version None)
Quarter: 2007Q4

REPORT INFORMATION
  Report Type: 
  Country: None (occurrence: None)
  Receive Date: 20071127
  Receipt Date: 20071116
  Transmission Date: 20080405
  Serious: Yes (Life-Threatening, Hospitalization)
  Sender: FDA-Public Use
  Company Number: US-JNJFOC-20050405371

PATIENT
  Sex: Male
  Weight: 107.96 kg

DRUGS (15)
  1. DOXIL [Suspect]
     Route: 042
  2. DOXIL [Suspect]
     Indication: MULTIPLE MYELOMA
     Route: 042
  3. THALIDOMIDE [Suspect]
     Route: 048
  4. THALIDOMIDE [Suspect]
     Route: 048
  5. THALIDOMIDE [Suspect]
     Indication: MULTIPLE MYELOMA
     Route: 048
  6. DEXAMETHASONE [Suspect]
     Route: 048
  7. DEXAMETHASONE [Suspect]
     Indication: MULTIPLE MYELOMA
     Route: 048
  8. DIOVAN [Concomitant]
     Indication: HYPERTENSION
     Route: 048
  9. ACYCLOVIR [Concomitant]
     Indication: PROPHYLAXIS
     Route: 048
  10. COUMADIN [Concomitant]
     Indication: PROPHYLAXIS
     Route: 048
  11. BACTRIM [Concomitant]
     Indication: PROPHYLAXIS
     Route: 048
  12. PERCOCET [Concomitant]
  13. PRILOSEC [Concomitant]
     Indication: PROPHYLAXIS
     Route: 048
  14. HYDROMORPHONE HCL [Concomitant]
  15. MYCELEX [Concomitant]
     Indication: CANDIDIASIS
     Route: 048

REACTIONS (24)
  - ACTIVATED PARTIAL THROMBOPLASTIN TIME SHORTENED [None]
  - ACUTE PRERENAL FAILURE [None]
  - BACTERAEMIA [None]
  - CATABOLIC STATE [None]
  - CONFUSIONAL STATE [None]
  - CONSTIPATION [None]
  - DEHYDRATION [None]
  - DIABETES MELLITUS [None]
  - ELECTROCARDIOGRAM ST-T SEGMENT ABNORMAL [None]
  - HAEMATURIA [None]
  - HEART RATE INCREASED [None]
  - HYPERGLYCAEMIA [None]
  - HYPERKALAEMIA [None]
  - JOINT EFFUSION [None]
  - MENTAL IMPAIRMENT [None]
  - MENTAL STATUS CHANGES [None]
  - PAIN [None]
  - PANCYTOPENIA [None]
  - PROTHROMBIN TIME PROLONGED [None]
  - PYREXIA [None]
  - RENAL FAILURE [None]
  - STREPTOCOCCAL INFECTION [None]
  - URINARY INCONTINENCE [None]
  - UROSEPSIS [None]
